FAERS Safety Report 7340586-0 (Version None)
Quarter: 2011Q1

REPORT INFORMATION
  Report Type: 
  Country: None (occurrence: None)
  Receive Date: 20110309
  Receipt Date: 20110301
  Transmission Date: 20110831
  Serious: Yes (Hospitalization)
  Sender: FDA-Public Use
  Company Number: PHHO2011US04191

PATIENT
  Sex: Male
  Weight: 97.1 kg

DRUGS (4)
  1. TASIGNA [Suspect]
     Indication: CHRONIC MYELOID LEUKAEMIA
     Dosage: 400 MG, BID
     Route: 048
     Dates: start: 20051219
  2. ASPIRIN [Concomitant]
     Indication: CARDIAC DISORDER
     Dosage: 325 MG, QD
     Route: 048
     Dates: start: 20100118
  3. NEBIVOLOL [Concomitant]
     Indication: HYPERTENSION
     Dosage: 5 MG, QD
     Route: 048
     Dates: start: 20101028
  4. CLOPIDOGREL [Concomitant]
     Indication: ANTIPLATELET THERAPY
     Dosage: 75 MG, QD
     Route: 048
     Dates: start: 20100118

REACTIONS (9)
  - ACTIVATED PARTIAL THROMBOPLASTIN TIME PROLONGED [None]
  - CORONARY ARTERY DISEASE [None]
  - LEFT VENTRICULAR DYSFUNCTION [None]
  - CHEST DISCOMFORT [None]
  - SYNCOPE [None]
  - ANGINA PECTORIS [None]
  - BLOOD CALCIUM DECREASED [None]
  - CORONARY ARTERY STENOSIS [None]
  - BLOOD GLUCOSE INCREASED [None]
